FAERS Safety Report 16925906 (Version 1)
Quarter: 2019Q4

REPORT INFORMATION
  Report Type: Spontaneous
  Country: US (occurrence: US)
  Receive Date: 20191016
  Receipt Date: 20191016
  Transmission Date: 20200122
  Serious: No
  Sender: FDA-Public Use
  Company Number: US-AKRON, INC.-2075723

PATIENT
  Age: 67 Year
  Sex: Female

DRUGS (1)
  1. AZELASTINE HCI OPTH SOLUTION [Suspect]
     Active Substance: AZELASTINE HYDROCHLORIDE
     Route: 047

REACTIONS (8)
  - Fatigue [None]
  - Nausea [None]
  - Somnolence [None]
  - Photophobia [None]
  - Eye pain [None]
  - Blood glucose decreased [None]
  - Headache [None]
  - Swelling [None]
